FAERS Safety Report 8611888-2 (Version None)
Quarter: 2012Q3

REPORT INFORMATION
  Report Type: 
  Country: None (occurrence: None)
  Receive Date: 20120822
  Receipt Date: 20120815
  Transmission Date: 20120928
  Serious: Yes (Other)
  Sender: FDA-Public Use
  Company Number: DE-UCBSA-021455

PATIENT
  Age: 19 Year
  Sex: Female

DRUGS (2)
  1. KEPPRA [Suspect]
     Dates: start: 20100708
  2. CORTISONE ACETATE [Suspect]
     Indication: SEASONAL ALLERGY
     Dosage: DEPOT

REACTIONS (1)
  - LIPOATROPHY [None]
